FAERS Safety Report 4590081-7 (Version None)
Quarter: 2005Q1

REPORT INFORMATION
  Report Type: 
  Country: None (occurrence: None)
  Receive Date: 20050217
  Receipt Date: 20050217
  Transmission Date: 20050727
  Serious: Yes (Hospitalization)
  Sender: FDA-Public Use
  Company Number: None

PATIENT
  Age: 57 Year
  Sex: Male
  Weight: 78 kg

DRUGS (9)
  1. SIMVASTATIN [Suspect]
  2. DOXCYCLIN HYCLATE [Concomitant]
  3. ALBUTEROL [Concomitant]
  4. COLON ELECTROLYTE LAVAGE [Concomitant]
  5. MAGNESIUM CITRATE [Concomitant]
  6. OMEPRAZOLE [Concomitant]
  7. NAPROXEN [Concomitant]
  8. OMEPRAZOLE [Concomitant]
  9. NAPROXEN [Concomitant]

REACTIONS (3)
  - BLOOD CREATINE PHOSPHOKINASE INCREASED [None]
  - LIVER FUNCTION TEST ABNORMAL [None]
  - MYALGIA [None]
